FAERS Safety Report 14460374 (Version 1)
Quarter: 2018Q1

REPORT INFORMATION
  Report Type: Other
  Country: US (occurrence: US)
  Receive Date: 20180130
  Receipt Date: 20180130
  Transmission Date: 20180509
  Serious: Yes (Hospitalization, Other)
  Sender: FDA-Public Use
  Company Number: US-ACORDA-ACO_140782_2017

PATIENT
  Sex: Male

DRUGS (3)
  1. OCREVUS [Suspect]
     Active Substance: OCRELIZUMAB
     Indication: MULTIPLE SCLEROSIS
     Dosage: UNK, INJECTION
     Route: 065
     Dates: start: 20170515, end: 20170515
  2. AMPYRA [Suspect]
     Active Substance: DALFAMPRIDINE
     Indication: MULTIPLE SCLEROSIS
     Dosage: 10 MG, Q 12 HRS
     Route: 048
     Dates: start: 20151203
  3. OCREVUS [Suspect]
     Active Substance: OCRELIZUMAB
     Dosage: UNK, INJECTION
     Route: 065
     Dates: start: 20170531, end: 20170531

REACTIONS (2)
  - Urinary tract infection [Recovered/Resolved]
  - Nerve injury [Unknown]
